FAERS Safety Report 5980221-7 (Version None)
Quarter: 2008Q4

REPORT INFORMATION
  Report Type: 
  Country: None (occurrence: None)
  Receive Date: 20081202
  Receipt Date: 20081202
  Transmission Date: 20090506
  Serious: No
  Sender: FDA-Public Use
  Company Number: None

PATIENT
  Age: 29 Year
  Sex: Female
  Weight: 59.4212 kg

DRUGS (1)
  1. CYMBALTA [Suspect]
     Indication: DEPRESSION
     Dosage: 30 MG CAPSULE ONCE EVERY DAY PO
     Route: 048
     Dates: start: 20071018, end: 20080316

REACTIONS (2)
  - ALCOHOL ABUSE [None]
  - ALCOHOLISM [None]
